FAERS Safety Report 4941095-6 (Version None)
Quarter: 2006Q1

REPORT INFORMATION
  Report Type: 
  Country: None (occurrence: None)
  Receive Date: 20060313
  Receipt Date: 20041007
  Transmission Date: 20060701
  Serious: Yes (Hospitalization, Other)
  Sender: FDA-Public Use
  Company Number: 2004GB02440

PATIENT
  Age: 23649 Day
  Sex: Female
  Weight: 65.5 kg

DRUGS (4)
  1. NOLVADEX [Suspect]
     Indication: BREAST CANCER
     Route: 048
     Dates: start: 19991012
  2. VOLTAREN [Concomitant]
     Indication: OSTEOARTHRITIS
     Dates: start: 20000328
  3. CO-CODAMOL [Concomitant]
     Indication: ARTHRALGIA
     Dates: start: 20030401
  4. CIMETIDINE [Concomitant]
     Indication: GASTROOESOPHAGEAL REFLUX DISEASE
     Dates: start: 20021015

REACTIONS (1)
  - OSTEOARTHRITIS [None]
